FAERS Safety Report 9802216 (Version 2)
Quarter: 2014Q1

REPORT INFORMATION
  Report Type: Spontaneous
  Country: CN (occurrence: CN)
  Receive Date: 20140107
  Receipt Date: 20140107
  Transmission Date: 20141002
  Serious: Yes (Hospitalization)
  Sender: FDA-Public Use
  Company Number: CN-ASTRAZENECA-2013SE87368

PATIENT
  Age: 71 Year
  Sex: Female

DRUGS (4)
  1. OXIS [Suspect]
     Indication: ASTHMA
     Route: 055
     Dates: start: 201312
  2. BUDESONIDE [Suspect]
     Indication: ASTHMA
     Route: 055
  3. JINTIANGE [Concomitant]
     Indication: OSTEONECROSIS
     Route: 048
     Dates: start: 2011
  4. KETOTIFEN [Concomitant]
     Route: 048

REACTIONS (5)
  - Cough [Recovered/Resolved]
  - Pollakiuria [Recovered/Resolved]
  - Tachycardia [Recovered/Resolved]
  - Bronchospasm [Recovered/Resolved]
  - Intentional drug misuse [Unknown]
